FAERS Safety Report 21873497 (Version 1)
Quarter: 2023Q1

REPORT INFORMATION
  Report Type: Report from Study
  Country: CA (occurrence: CA)
  Receive Date: 20230117
  Receipt Date: 20230117
  Transmission Date: 20230417
  Serious: Yes (Other)
  Sender: FDA-Public Use
  Company Number: CA-JNJFOC-20221206949

PATIENT
  Age: 52 Year
  Sex: Male

DRUGS (5)
  1. SPRAVATO [Suspect]
     Active Substance: ESKETAMINE
     Indication: Product used for unknown indication
     Dates: start: 20221107
  2. SPRAVATO [Suspect]
     Active Substance: ESKETAMINE
  3. PREGABALIN [Concomitant]
     Active Substance: PREGABALIN
     Dates: start: 20221028
  4. WELLBUTRIN XL [Concomitant]
     Active Substance: BUPROPION HYDROCHLORIDE
     Dosage: 300 MG: AM?150 MG: PM
  5. DEXLANSOPRAZOLE [Concomitant]
     Active Substance: DEXLANSOPRAZOLE

REACTIONS (1)
  - Sedation [Recovered/Resolved]

NARRATIVE: CASE EVENT DATE: 20221107
